FAERS Safety Report 5368584-7 (Version None)
Quarter: 2007Q2

REPORT INFORMATION
  Report Type: 
  Country: None (occurrence: None)
  Receive Date: 20070621
  Receipt Date: 20070604
  Transmission Date: 20071010
  Serious: Yes (Other)
  Sender: FDA-Public Use
  Company Number: 2007323220

PATIENT
  Age: 45 Year
  Sex: Male
  Weight: 93 kg

DRUGS (5)
  1. BENADRYL [Suspect]
     Indication: INSOMNIA
     Dosage: 2 STRIPS ONCE (1 IN 1 D), ORAL
     Route: 048
     Dates: start: 20070602, end: 20070602
  2. ASPIRIN [Concomitant]
  3. MULTIVITAMIN [Concomitant]
  4. LISINOPRIL [Concomitant]
  5. PRILOSEC [Concomitant]

REACTIONS (1)
  - HALLUCINATION, VISUAL [None]
